FAERS Safety Report 11309690 (Version 1)
Quarter: 2015Q3

REPORT INFORMATION
  Report Type: Spontaneous
  Country: US (occurrence: US)
  Receive Date: 20150724
  Receipt Date: 20150724
  Transmission Date: 20151125
  Serious: No
  Sender: FDA-Public Use
  Company Number: GXBR2015US001623

PATIENT
  Sex: Female

DRUGS (1)
  1. SWIM-EAR [Suspect]
     Active Substance: ISOPROPYL ALCOHOL
     Indication: MIDDLE EAR EFFUSION
     Dosage: UNK DF, 1 TO 2 DOSES
     Route: 065
     Dates: start: 20150625

REACTIONS (1)
  - Ear discomfort [Recovering/Resolving]
